FAERS Safety Report 23876998 (Version 9)
Quarter: 2025Q4

REPORT INFORMATION
  Report Type: Report from Study
  Country: EU (occurrence: EU)
  Receive Date: 20240521
  Receipt Date: 20251203
  Transmission Date: 20260117
  Serious: Yes (Hospitalization, Other)
  Sender: NOVARTIS
  Company Number: EU-002147023-NVSC2024DE104682

PATIENT
  Age: 57 Year
  Sex: Female
  Weight: 54 kg

DRUGS (1)
  1. COSENTYX [Suspect]
     Active Substance: SECUKINUMAB
     Indication: Psoriasis
     Dosage: 150 MG, QW (1 WK. ON 1 D/WK.)
     Route: 058
     Dates: start: 20191125, end: 20230828

REACTIONS (5)
  - Procedural pneumothorax [Recovered/Resolved]
  - Necrosis [Unknown]
  - Pulmonary necrosis [Recovered/Resolved]
  - Chronic obstructive pulmonary disease [Recovered/Resolved with Sequelae]
  - Emphysema [Recovered/Resolved with Sequelae]

NARRATIVE: CASE EVENT DATE: 20230501
